FAERS Safety Report 6731148-4 (Version None)
Quarter: 2010Q2

REPORT INFORMATION
  Report Type: 
  Country: None (occurrence: None)
  Receive Date: 20100518
  Receipt Date: 20100505
  Transmission Date: 20101027
  Serious: Yes (Hospitalization)
  Sender: FDA-Public Use
  Company Number: US-ELI_LILLY_AND_COMPANY-US201005001715

PATIENT
  Age: 57 Year
  Sex: Female

DRUGS (2)
  1. CYMBALTA [Suspect]
     Indication: FIBROMYALGIA
     Dosage: 60 MG, DAILY (1/D)
     Dates: start: 20050101, end: 20090101
  2. CYMBALTA [Suspect]
     Dosage: 90 MG, UNK
     Dates: start: 20090101

REACTIONS (5)
  - BIPOLAR DISORDER [None]
  - DRUG WITHDRAWAL SYNDROME [None]
  - ERUCTATION [None]
  - OESOPHAGEAL SPASM [None]
  - SUICIDAL IDEATION [None]
